FAERS Safety Report 9789966 (Version 3)
Quarter: 2014Q2

REPORT INFORMATION
  Report Type: Spontaneous
  Country: US (occurrence: US)
  Receive Date: 20131231
  Receipt Date: 20140521
  Transmission Date: 20141212
  Serious: Yes (Hospitalization)
  Sender: FDA-Public Use
  Company Number: US-BAYER-2013-158450

PATIENT
  Age: 26 Year
  Sex: Female
  Weight: 74 kg

DRUGS (5)
  1. MIRENA [Suspect]
     Indication: MENORRHAGIA
     Dosage: 20 MCG/24HR, CONT
     Route: 015
     Dates: start: 20071008, end: 20110118
  2. CLONAZEPAM [Concomitant]
     Dosage: UNK
     Dates: start: 2002
  3. ZOLOFT [Concomitant]
     Indication: ANXIETY
  4. DIFLUCAN [Concomitant]
  5. WELLBUTRIN [Concomitant]

REACTIONS (12)
  - Embedded device [None]
  - Injury [None]
  - Medical device discomfort [None]
  - Medical device pain [None]
  - Dyspareunia [None]
  - Pelvic pain [None]
  - Abdominal pain [None]
  - Complication of device removal [None]
  - Vulvovaginal pruritus [None]
  - Ovarian cyst [None]
  - Anxiety [None]
  - Device issue [None]
